FAERS Safety Report 18718336 (Version 1)
Quarter: 2021Q1

REPORT INFORMATION
  Report Type: Spontaneous
  Country: US (occurrence: US)
  Receive Date: 20210108
  Receipt Date: 20210108
  Transmission Date: 20210419
  Serious: Yes (Other)
  Sender: FDA-Public Use
  Company Number: US-TEVA-2021-US-1866831

PATIENT
  Sex: Female

DRUGS (5)
  1. CODEINE PHOSPHATE [Suspect]
     Active Substance: CODEINE PHOSPHATE
     Route: 065
  2. DILAUDID [Suspect]
     Active Substance: HYDROMORPHONE HYDROCHLORIDE
     Route: 065
  3. ACETAMINOPHEN. [Suspect]
     Active Substance: ACETAMINOPHEN
     Route: 065
  4. TRAMADOL. [Suspect]
     Active Substance: TRAMADOL
     Route: 065
  5. DURAGESIC [Suspect]
     Active Substance: FENTANYL
     Route: 065

REACTIONS (4)
  - Live birth [Unknown]
  - Drug diversion [Unknown]
  - Drug dependence [Unknown]
  - Maternal exposure during pregnancy [Unknown]
